FAERS Safety Report 9212817 (Version 4)
Quarter: 2013Q2

REPORT INFORMATION
  Report Type: Spontaneous
  Country: JP (occurrence: JP)
  Receive Date: 20130405
  Receipt Date: 20130430
  Transmission Date: 20140414
  Serious: Yes (Hospitalization, Other)
  Sender: FDA-Public Use
  Company Number: JP-009507513-1304JPN000562

PATIENT
  Age: 61 Year
  Sex: Female
  Weight: 80 kg

DRUGS (13)
  1. PEGINTRON [Suspect]
     Indication: CHRONIC HEPATITIS C
     Dosage: 1.0 MICROGRAM PER KILOGRAM, UNK
     Route: 058
     Dates: start: 20130117, end: 20130206
  2. PEGINTRON [Suspect]
     Dosage: 0.75 MICROGRAM PER KILOGRAM, UNK
     Route: 058
     Dates: start: 20130207, end: 20130228
  3. REBETOL [Suspect]
     Indication: CHRONIC HEPATITIS C
     Dosage: 600 MG, QD
     Route: 048
     Dates: start: 20130117, end: 20130206
  4. REBETOL [Suspect]
     Dosage: 200 MG, QD
     Route: 048
     Dates: start: 20130207, end: 20130213
  5. REBETOL [Suspect]
     Dosage: 200 MG, QD
     Route: 048
     Dates: start: 20130221, end: 20130228
  6. REBETOL [Suspect]
     Dosage: 400 MG, QD
     Route: 048
     Dates: start: 20130228, end: 20130306
  7. TELAVIC [Suspect]
     Indication: CHRONIC HEPATITIS C
     Dosage: 1500MG, QD
     Route: 048
     Dates: start: 20130117, end: 20130307
  8. ALLOPURINOL [Suspect]
     Indication: PROPHYLAXIS
     Dosage: 100 MG, QD
     Route: 048
     Dates: start: 20130117, end: 20130307
  9. OLMETEC [Suspect]
     Indication: PROPHYLAXIS
     Dosage: 20 MG, QD
     Route: 048
     Dates: start: 20130117, end: 20130307
  10. LAXOBERON [Suspect]
     Indication: CONSTIPATION
     Dosage: 10 GTT, PRN
     Route: 048
     Dates: start: 20130123, end: 20130307
  11. MAGMITT [Suspect]
     Indication: CONSTIPATION
     Dosage: 330 MG, QD
     Route: 048
     Dates: start: 20130127, end: 20130203
  12. MYSER (DIFLUPREDNATE) [Concomitant]
     Dosage: 100 G, QD
     Route: 061
     Dates: start: 20130228
  13. MYSER (DIFLUPREDNATE) [Concomitant]
     Dosage: UNK

REACTIONS (2)
  - Drug eruption [Not Recovered/Not Resolved]
  - Eosinophil count increased [Recovered/Resolved]
